FAERS Safety Report 14617337 (Version 1)
Quarter: 2018Q1

REPORT INFORMATION
  Report Type: Spontaneous
  Country: GB (occurrence: GB)
  Receive Date: 20180309
  Receipt Date: 20180309
  Transmission Date: 20180509
  Serious: Yes (Other)
  Sender: FDA-Public Use
  Company Number: GB-AUROBINDO-AUR-APL-2018-011866

PATIENT

DRUGS (1)
  1. CITALOPRAM [Suspect]
     Active Substance: CITALOPRAM HYDROBROMIDE
     Indication: ANXIETY
     Dosage: 10 MILLIGRAM
     Route: 048
     Dates: start: 20171110

REACTIONS (4)
  - Hallucination, auditory [Not Recovered/Not Resolved]
  - Tension headache [Not Recovered/Not Resolved]
  - Nausea [Not Recovered/Not Resolved]
  - Mydriasis [Not Recovered/Not Resolved]
